FAERS Safety Report 7214820-1 (Version None)
Quarter: 2011Q1

REPORT INFORMATION
  Report Type: 
  Country: None (occurrence: None)
  Receive Date: 20110107
  Receipt Date: 20100713
  Transmission Date: 20110831
  Serious: No
  Sender: FDA-Public Use
  Company Number: A0850235A

PATIENT
  Age: 55 Year
  Sex: Female

DRUGS (5)
  1. MULTI-VITAMINS [Concomitant]
  2. HYDROCHLOROTHIAZIDE [Concomitant]
  3. LOVAZA [Suspect]
     Route: 048
     Dates: start: 20100201, end: 20100312
  4. ATENOLOL [Concomitant]
  5. POTASSIUM [Concomitant]

REACTIONS (3)
  - CONSTIPATION [None]
  - PRODUCT QUALITY ISSUE [None]
  - NAUSEA [None]
